FAERS Safety Report 6119829-7 (Version None)
Quarter: 2009Q1

REPORT INFORMATION
  Report Type: 
  Country: None (occurrence: None)
  Receive Date: 20090316
  Receipt Date: 20090304
  Transmission Date: 20090719
  Serious: Yes (Hospitalization)
  Sender: FDA-Public Use
  Company Number: PHHY2009DE08877

PATIENT
  Sex: Female

DRUGS (16)
  1. EXELON [Suspect]
     Dosage: 6MG/DAY
     Route: 048
     Dates: start: 20020101
  2. ZYPREXA [Suspect]
     Indication: BIPOLAR DISORDER
     Dosage: 15MG/DAY
     Route: 048
     Dates: end: 20080909
  3. MELPERON [Suspect]
     Dosage: 5MG/DAY
     Dates: start: 20080910, end: 20080928
  4. MELPERON [Suspect]
     Dosage: 50MG/DAY
     Dates: start: 20080923, end: 20080924
  5. MELPERON [Suspect]
     Dosage: 175 MG/DAY
     Dates: start: 20080925, end: 20080928
  6. MELPERON [Suspect]
     Dosage: 100MG/DAY
     Dates: start: 20080929
  7. MELPERON [Suspect]
     Dosage: 75MG/DAY
     Dates: start: 20080930
  8. MELPERON [Suspect]
     Dosage: 50MG/DAY
     Dates: start: 20081001
  9. MELPERON [Suspect]
     Dosage: 25MG/DAY
     Dates: start: 20081002
  10. REMERGIL [Suspect]
     Dosage: 15MG/DAY
     Route: 048
     Dates: start: 20080923, end: 20080924
  11. REMERGIL [Suspect]
     Dosage: 30MG/DAY
     Route: 048
     Dates: start: 20080925, end: 20080927
  12. REMERGIL [Suspect]
     Dosage: 45MG/DAY
     Route: 048
     Dates: start: 20080928
  13. LEVOTHYROXINE SODIUM [Concomitant]
     Dosage: 0.15MG/DAY
     Route: 048
     Dates: start: 20080926
  14. RAMIPRIL [Concomitant]
     Dosage: 5MG/DAILY
     Route: 048
  15. BISOPROLOL [Concomitant]
     Dosage: 5 MG/DAY
     Route: 048
  16. SIMVASTATIN [Concomitant]
     Dosage: 20MG/DAY
     Route: 048

REACTIONS (3)
  - AKATHISIA [None]
  - INSOMNIA [None]
  - MUSCLE RIGIDITY [None]
